FAERS Safety Report 5757555-4 (Version None)
Quarter: 2008Q2

REPORT INFORMATION
  Report Type: 
  Country: None (occurrence: None)
  Receive Date: 20080603
  Receipt Date: 20080522
  Transmission Date: 20081010
  Serious: Yes (Other)
  Sender: FDA-Public Use
  Company Number: GB-PFIZER INC-2008040857

PATIENT
  Sex: Male

DRUGS (1)
  1. CHANTIX [Suspect]
     Route: 048

REACTIONS (3)
  - CARBON DIOXIDE DECREASED [None]
  - CONDITION AGGRAVATED [None]
  - DYSPNOEA AT REST [None]
